FAERS Safety Report 8965031 (Version 1)
Quarter: 2012Q4

REPORT INFORMATION
  Report Type: 
  Country: US (occurrence: US)
  Receive Date: 20121213
  Receipt Date: 20121213
  Transmission Date: 20130627
  Serious: No
  Sender: FDA-Public Use
  Company Number: US-BRISTOL-MYERS SQUIBB COMPANY-16218604

PATIENT
  Sex: Female

DRUGS (3)
  1. PRAVASTATIN SODIUM [Suspect]
  2. AMLODIPINE [Suspect]
  3. PREDNISONE [Suspect]

REACTIONS (8)
  - Polymyalgia rheumatica [Unknown]
  - Paraesthesia [Unknown]
  - Somnolence [Unknown]
  - Tendon rupture [Unknown]
  - Pyrexia [Unknown]
  - Oedema peripheral [Unknown]
  - Urine output increased [Unknown]
  - Musculoskeletal pain [Unknown]
